FAERS Safety Report 4844676-3 (Version None)
Quarter: 2005Q4

REPORT INFORMATION
  Report Type: 
  Country: None (occurrence: None)
  Receive Date: 20051125
  Receipt Date: 20051114
  Transmission Date: 20060501
  Serious: Yes (Hospitalization)
  Sender: FDA-Public Use
  Company Number: 2005156066

PATIENT
  Age: 17 Year
  Sex: Female

DRUGS (2)
  1. VFEND [Suspect]
     Indication: ACUTE MYELOID LEUKAEMIA
     Dosage: 400 MG (200 MG, 2 IN 1 D), INTRAVENOUS
     Route: 042
     Dates: start: 20051101, end: 20051113
  2. CILASTATIN SODIUM W/IMIPENEM (CILASTATIN SODIUM, IMIPENEM) [Concomitant]

REACTIONS (5)
  - ABNORMAL BEHAVIOUR [None]
  - AGGRESSION [None]
  - HALLUCINATION, AUDITORY [None]
  - HALLUCINATION, VISUAL [None]
  - MALAISE [None]
